FAERS Safety Report 6501369-4 (Version None)
Quarter: 2009Q4

REPORT INFORMATION
  Report Type: 
  Country: None (occurrence: None)
  Receive Date: 20091216
  Receipt Date: 20091208
  Transmission Date: 20100525
  Serious: No
  Sender: FDA-Public Use
  Company Number: US-ASTRAZENECA-2009SE30768

PATIENT
  Age: 46 Year
  Sex: Male
  Weight: 104.3 kg

DRUGS (5)
  1. SEROQUEL [Suspect]
     Indication: MENTAL DISORDER
     Route: 048
     Dates: start: 20050101
  2. REMERON [Concomitant]
     Route: 048
  3. KLONIDINE [Concomitant]
     Route: 048
  4. XYPREXA [Concomitant]
     Route: 048
  5. ATIVAN [Concomitant]
     Route: 048

REACTIONS (2)
  - DIABETES MELLITUS [None]
  - PLATELET COUNT DECREASED [None]
